FAERS Safety Report 9114602 (Version 1)
Quarter: 2013Q1

REPORT INFORMATION
  Report Type: Spontaneous
  Country: US (occurrence: None)
  Receive Date: 20130220
  Receipt Date: 20130220
  Transmission Date: 20140127
  Serious: Yes (Hospitalization)
  Sender: FDA-Public Use
  Company Number: None

PATIENT
  Age: 75 Year
  Sex: Female

DRUGS (10)
  1. ORENCIA [Suspect]
     Indication: RHEUMATOID ARTHRITIS
     Route: 042
     Dates: start: 20100422, end: 20130214
  2. METHOTREXATE [Concomitant]
  3. METFORMIN [Concomitant]
  4. TAMOXIFEN [Concomitant]
  5. METOPROLOL [Concomitant]
  6. OMEPRAZOLE [Concomitant]
  7. ROPINIROLE [Concomitant]
  8. PREDNISONE [Concomitant]
  9. ALPRASOLAM [Concomitant]
  10. CROSTOR [Concomitant]

REACTIONS (2)
  - Malaise [None]
  - Incoherent [None]
